FAERS Safety Report 23475112 (Version 1)
Quarter: 2024Q1

REPORT INFORMATION
  Report Type: Report from Study
  Country: US (occurrence: US)
  Receive Date: 20240204
  Receipt Date: 20240204
  Transmission Date: 20240410
  Serious: No
  Sender: FDA-Public Use
  Company Number: US-EXELIXIS-CABO-22058362

PATIENT
  Age: 78 Year
  Sex: Female

DRUGS (15)
  1. CABOMETYX [Suspect]
     Active Substance: CABOZANTINIB S-MALATE
     Indication: Neuroendocrine tumour
     Dosage: 40 MG, QD
     Dates: start: 20221107, end: 20221216
  2. CABOMETYX [Suspect]
     Active Substance: CABOZANTINIB S-MALATE
     Indication: Metastases to breast
     Dosage: 20 MG, QD (HALF TABLET OF 40 MG)
     Dates: start: 20230110
  3. CABOMETYX [Suspect]
     Active Substance: CABOZANTINIB S-MALATE
     Dosage: 20 MG, QD
     Dates: start: 20230127
  4. LANREOTIDE [Suspect]
     Active Substance: LANREOTIDE
     Indication: Metastases to breast
     Dosage: UNK, Q28DAYS
     Dates: start: 20221107
  5. LANREOTIDE [Suspect]
     Active Substance: LANREOTIDE
     Indication: Neuroendocrine tumour
  6. CITALOPRAM [Concomitant]
     Active Substance: CITALOPRAM HYDROBROMIDE
  7. VITAMINS [Concomitant]
     Active Substance: VITAMINS
  8. LEVOTHYROXINE [Concomitant]
     Active Substance: LEVOTHYROXINE\LEVOTHYROXINE SODIUM
  9. NIACINAMIDE [Concomitant]
     Active Substance: NIACINAMIDE
  10. TACROLIMUS [Concomitant]
     Active Substance: TACROLIMUS
  11. DRONABINOL [Concomitant]
     Active Substance: DRONABINOL
  12. VITAMIN D [Concomitant]
     Active Substance: VITAMIN D NOS
  13. LIDOCAINE AND PRILOCAINE [Concomitant]
     Active Substance: LIDOCAINE\PRILOCAINE
  14. OMEPRAZOLE [Concomitant]
     Active Substance: OMEPRAZOLE
  15. FLUOCINONIDE [Concomitant]
     Active Substance: FLUOCINONIDE
     Dosage: UNK

REACTIONS (11)
  - Fall [Not Recovered/Not Resolved]
  - Gingival erosion [Recovered/Resolved]
  - Diarrhoea [Recovering/Resolving]
  - Blood pressure increased [Recovering/Resolving]
  - Weight decreased [Recovered/Resolved]
  - Palmar-plantar erythrodysaesthesia syndrome [Recovering/Resolving]
  - Wound [Not Recovered/Not Resolved]
  - Oral pain [Recovered/Resolved]
  - Hepatic enzyme increased [Not Recovered/Not Resolved]
  - Wrong technique in product usage process [Unknown]
  - Off label use [Unknown]

NARRATIVE: CASE EVENT DATE: 20221209
